FAERS Safety Report 10513064 (Version 2)
Quarter: 2015Q3

REPORT INFORMATION
  Report Type: Spontaneous
  Country: GB (occurrence: GB)
  Receive Date: 20141013
  Receipt Date: 20150821
  Transmission Date: 20151125
  Serious: Yes (Hospitalization)
  Sender: FDA-Public Use
  Company Number: GB-AUROBINDO-AUR-APL-2014-10645

PATIENT
  Age: 48 Year
  Sex: Female
  Weight: 62.59 kg

DRUGS (7)
  1. VESICARE [Concomitant]
     Active Substance: SOLIFENACIN SUCCINATE
     Indication: PRODUCT USED FOR UNKNOWN INDICATION
     Dosage: UNK
     Route: 065
  2. ZOLPIDEM [Concomitant]
     Active Substance: ZOLPIDEM\ZOLPIDEM TARTRATE
     Indication: PRODUCT USED FOR UNKNOWN INDICATION
     Dosage: UNK
     Route: 065
  3. ONDANSETRON [Suspect]
     Active Substance: ONDANSETRON
     Indication: PROPHYLAXIS OF NAUSEA AND VOMITING
     Dosage: UNK
     Route: 051
  4. FEMOSTON [Concomitant]
     Active Substance: DYDROGESTERONE\ESTRADIOL
     Indication: PRODUCT USED FOR UNKNOWN INDICATION
     Dosage: UNK
     Route: 065
  5. ANAESTHETICS [Concomitant]
     Active Substance: UNSPECIFIED INGREDIENT
     Indication: PRODUCT USED FOR UNKNOWN INDICATION
     Dosage: UNK
     Route: 065
  6. ONDANSETRON [Suspect]
     Active Substance: ONDANSETRON
     Dosage: ADMINISTERED AS A ONE OFF PROPHYLACTIC DOSE DURING AN ANAESTHETIC SO I DO NOT TAKE IT REGULARLY.
     Route: 051
  7. FOLIC ACID. [Concomitant]
     Active Substance: FOLIC ACID
     Indication: PRODUCT USED FOR UNKNOWN INDICATION
     Dosage: UNK
     Route: 065

REACTIONS (10)
  - Asthenia [Not Recovered/Not Resolved]
  - Dystonia [Recovered/Resolved with Sequelae]
  - Fatigue [Not Recovered/Not Resolved]
  - Dyskinesia [Recovered/Resolved]
  - Torticollis [Recovered/Resolved]
  - Body temperature increased [Recovered/Resolved]
  - Malaise [Not Recovered/Not Resolved]
  - Seizure [Recovered/Resolved]
  - Abnormal loss of weight [Not Recovered/Not Resolved]
  - Muscle rigidity [Recovered/Resolved]

NARRATIVE: CASE EVENT DATE: 20140707
